FAERS Safety Report 7658391-4 (Version None)
Quarter: 2011Q3

REPORT INFORMATION
  Report Type: 
  Country: None (occurrence: None)
  Receive Date: 20110805
  Receipt Date: 20110726
  Transmission Date: 20111222
  Serious: Yes (Other)
  Sender: FDA-Public Use
  Company Number: US-JNJFOC-20110701009

PATIENT
  Age: 50 Year
  Sex: Female
  Weight: 70.31 kg

DRUGS (9)
  1. CANASA [Concomitant]
     Dosage: X 10 DAYS
     Route: 054
  2. BENADRYL [Concomitant]
     Dosage: 25 MG WITH PREDNISONE
     Route: 048
  3. PROTONIX [Concomitant]
     Route: 048
  4. IMURAN [Concomitant]
     Route: 048
  5. ULTRAM [Concomitant]
     Dosage: 50 MG EVERY 8 HOURS AS NEEDED FOR PAIN
  6. REMICADE [Suspect]
     Indication: CROHN'S DISEASE
     Route: 042
  7. CITALOPRAM HYDROBROMIDE [Concomitant]
  8. HYDROCHLOROTHIAZIDE [Concomitant]
  9. REMICADE [Suspect]
     Dosage: 0,2,6 WEEKS
     Route: 042
     Dates: start: 20100101

REACTIONS (3)
  - NASAL ULCER [None]
  - STAPHYLOCOCCAL INFECTION [None]
  - TONGUE ULCERATION [None]
